FAERS Safety Report 6534685-0 (Version None)
Quarter: 2010Q1

REPORT INFORMATION
  Report Type: 
  Country: None (occurrence: None)
  Receive Date: 20100112
  Receipt Date: 20100106
  Transmission Date: 20100710
  Serious: Yes (Hospitalization, Other)
  Sender: FDA-Public Use
  Company Number: US-MERCK-0906USA03245

PATIENT
  Age: 83 Year
  Sex: Female

DRUGS (1)
  1. FOSAMAX [Suspect]
     Indication: OSTEOPOROSIS
     Route: 048
     Dates: start: 20011010, end: 20050524

REACTIONS (31)
  - ACTINOMYCOSIS [None]
  - ANAEMIA OF CHRONIC DISEASE [None]
  - ANXIETY [None]
  - ARTHRITIS [None]
  - BLOOD CHOLESTEROL INCREASED [None]
  - BLOOD THYROID STIMULATING HORMONE DECREASED [None]
  - BLOOD TRIGLYCERIDES INCREASED [None]
  - BONE DISORDER [None]
  - CEREBRAL INFARCTION [None]
  - DEHYDRATION [None]
  - DEMENTIA ALZHEIMER'S TYPE [None]
  - DENTAL CARIES [None]
  - DEPRESSION [None]
  - DIABETIC NEUROPATHY [None]
  - DRUG INTOLERANCE [None]
  - EXCORIATION [None]
  - EXOSTOSIS [None]
  - FALL [None]
  - GOITRE [None]
  - HALLUCINATION [None]
  - IRON DEFICIENCY ANAEMIA [None]
  - JAW FRACTURE [None]
  - MUSCULOSKELETAL PAIN [None]
  - OSTEOMYELITIS [None]
  - OSTEONECROSIS [None]
  - PERIODONTAL DISEASE [None]
  - RHABDOMYOLYSIS [None]
  - SYNCOPE [None]
  - TOOTH ABSCESS [None]
  - TREATMENT NONCOMPLIANCE [None]
  - URINARY RETENTION [None]
